FAERS Safety Report 23273416 (Version 2)
Quarter: 2023Q4

REPORT INFORMATION
  Report Type: Report from Study
  Country: US (occurrence: US)
  Receive Date: 20231207
  Receipt Date: 20231228
  Transmission Date: 20240110
  Serious: Yes (Hospitalization, Other)
  Sender: FDA-Public Use
  Company Number: US-Stemline Therapeutics, Inc.-2023ST004752

PATIENT
  Age: 74 Year
  Sex: Female

DRUGS (2)
  1. ORSERDU [Suspect]
     Active Substance: ELACESTRANT
     Indication: Product used for unknown indication
     Route: 048
     Dates: start: 20230929
  2. ORSERDU [Suspect]
     Active Substance: ELACESTRANT
     Route: 048
     Dates: start: 20231210

REACTIONS (5)
  - Blood pressure decreased [Not Recovered/Not Resolved]
  - Fall [Recovered/Resolved]
  - Head injury [Recovered/Resolved]
  - Face injury [Not Recovered/Not Resolved]
  - Confusional state [Not Recovered/Not Resolved]

NARRATIVE: CASE EVENT DATE: 20231126
